FAERS Safety Report 11430708 (Version 2)
Quarter: 2018Q2

REPORT INFORMATION
  Report Type: Spontaneous
  Country: CA (occurrence: CA)
  Receive Date: 20150828
  Receipt Date: 20180420
  Transmission Date: 20180711
  Serious: Yes (Hospitalization, Other)
  Sender: FDA-Public Use
  Company Number: CA-009507513-1508CAN009839

PATIENT
  Age: 55 Year
  Sex: Female

DRUGS (1)
  1. EZETROL [Suspect]
     Active Substance: EZETIMIBE
     Indication: HYPERCHOLESTEROLAEMIA
     Dosage: 10 MG, DAILY
     Route: 048
     Dates: start: 2012

REACTIONS (4)
  - Breast cancer female [Recovered/Resolved]
  - Drug dose omission [Unknown]
  - Deafness [Unknown]
  - Mutism [Unknown]

NARRATIVE: CASE EVENT DATE: 201301
